FAERS Safety Report 8465003-9 (Version None)
Quarter: 2012Q2

REPORT INFORMATION
  Report Type: 
  Country: None (occurrence: None)
  Receive Date: 20120626
  Receipt Date: 20120618
  Transmission Date: 20120825
  Serious: Yes (Hospitalization, Other)
  Sender: FDA-Public Use
  Company Number: AT-B.I. PHARMACEUTICALS,INC./RIDGEFIELD-2012-AP-00048AP

PATIENT
  Age: 70 Year
  Sex: Female

DRUGS (1)
  1. MICARDIS [Suspect]
     Dosage: 40/ 12.5
     Route: 048
     Dates: start: 20110401, end: 20120101

REACTIONS (2)
  - REFRACTORY ANAEMIA [None]
  - COLON CANCER [None]
